FAERS Safety Report 9967243 (Version 2)
Quarter: 2014Q1

REPORT INFORMATION
  Report Type: Report from Study
  Country: US (occurrence: US)
  Receive Date: 20140305
  Receipt Date: 20140305
  Transmission Date: 20141002
  Serious: No
  Sender: FDA-Public Use
  Company Number: US-ABBVIE-13P-163-1108730-00

PATIENT
  Age: 45 Year
  Sex: Female

DRUGS (7)
  1. HUMIRA [Suspect]
     Indication: RHEUMATOID ARTHRITIS
     Dates: start: 20130502
  2. LORATAB [Concomitant]
     Indication: PAIN
  3. TRAZODONE [Concomitant]
     Indication: INSOMNIA
     Dates: end: 201308
  4. XANAX [Concomitant]
     Indication: PRODUCT USED FOR UNKNOWN INDICATION
  5. BENADRYL [Concomitant]
     Indication: INSOMNIA
  6. METHYLPREDNISOLONE [Concomitant]
     Indication: PRODUCT USED FOR UNKNOWN INDICATION
  7. CLARITIN-D [Concomitant]
     Indication: NASAL CONGESTION

REACTIONS (9)
  - Pollakiuria [Recovering/Resolving]
  - Insomnia [Recovering/Resolving]
  - Injection site pain [Recovering/Resolving]
  - Sinusitis [Recovering/Resolving]
  - Injection site bruising [Recovering/Resolving]
  - Musculoskeletal pain [Recovered/Resolved]
  - Musculoskeletal pain [Not Recovered/Not Resolved]
  - Burning sensation [Not Recovered/Not Resolved]
  - Anxiety [Unknown]
